FAERS Safety Report 4837478-5 (Version None)
Quarter: 2005Q4

REPORT INFORMATION
  Report Type: 
  Country: None (occurrence: None)
  Receive Date: 20051123
  Receipt Date: 20051123
  Transmission Date: 20060501
  Serious: Yes (Hospitalization)
  Sender: FDA-Public Use
  Company Number: None

PATIENT
  Age: 77 Year
  Sex: Male
  Weight: 54.4 kg

DRUGS (7)
  1. PHENYTOIN [Suspect]
     Indication: CONVULSION
     Dosage: 400MG, 200MG BI, ORAL
     Route: 048
  2. THROAT LOZENGE W/BENZOCAINE [Concomitant]
  3. TOBRAMYCIN [Concomitant]
  4. VALPROIC ACID [Concomitant]
  5. DILANTIN [Concomitant]
  6. CARBAMIDE PEROXIDE [Concomitant]
  7. ARTIFICIAL TEARS POLYVINYL ALCOHOL [Concomitant]

REACTIONS (1)
  - DRUG TOXICITY [None]
